FAERS Safety Report 17249010 (Version 1)
Quarter: 2020Q1

REPORT INFORMATION
  Report Type: Spontaneous
  Country: US (occurrence: US)
  Receive Date: 20200108
  Receipt Date: 20200108
  Transmission Date: 20200409
  Serious: No
  Sender: FDA-Public Use
  Company Number: US-COLLEGIUM PHARMACEUTICAL, INC.-US-2019COL000100

PATIENT
  Sex: Male
  Weight: 104.31 kg

DRUGS (2)
  1. NUCYNTA [Suspect]
     Active Substance: TAPENTADOL HYDROCHLORIDE
     Indication: BACK PAIN
     Dosage: 50 MG, TID (EVERY 8 HOURS)
     Route: 048
     Dates: start: 2018, end: 2019
  2. NUCYNTA [Suspect]
     Active Substance: TAPENTADOL HYDROCHLORIDE
     Dosage: 1/2 TABLET, EVERY 4 HOURS
     Route: 048
     Dates: start: 2019

REACTIONS (1)
  - Drug ineffective [Unknown]
